FAERS Safety Report 14121359 (Version 1)
Quarter: 2017Q4

REPORT INFORMATION
  Report Type: Spontaneous
  Country: US (occurrence: US)
  Receive Date: 20171024
  Receipt Date: 20171024
  Transmission Date: 20180321
  Serious: No
  Sender: FDA-Public Use
  Company Number: US-MYLANLABS-2017M1061095

PATIENT
  Sex: Female

DRUGS (3)
  1. TOLMETIN [Suspect]
     Active Substance: TOLMETIN
     Indication: ARTHRALGIA
  2. TOLMETIN [Suspect]
     Active Substance: TOLMETIN
     Indication: LIMB INJURY
     Dosage: UNK
  3. TOLMETIN [Suspect]
     Active Substance: TOLMETIN
     Indication: PREMENSTRUAL SYNDROME

REACTIONS (1)
  - Therapeutic response unexpected [Unknown]
